FAERS Safety Report 5360274-X (Version None)
Quarter: 2007Q2

REPORT INFORMATION
  Report Type: 
  Country: None (occurrence: None)
  Receive Date: 20070618
  Receipt Date: 20070612
  Transmission Date: 20071010
  Serious: Yes (Death)
  Sender: FDA-Public Use
  Company Number: US-NOVOPROD-264511

PATIENT
  Sex: Female

DRUGS (1)
  1. NOVOSEVEN [Suspect]
     Indication: UTERINE HAEMORRHAGE
     Dosage: UNKNOWN
     Route: 042

REACTIONS (1)
  - HAEMORRHAGE [None]
